FAERS Safety Report 15329824 (Version 1)
Quarter: 2018Q3

REPORT INFORMATION
  Report Type: Spontaneous
  Country: US (occurrence: US)
  Receive Date: 20180829
  Receipt Date: 20180829
  Transmission Date: 20181010
  Serious: No
  Sender: FDA-Public Use
  Company Number: US-PFIZER INC-2015060249

PATIENT
  Age: 9 Year
  Sex: Male
  Weight: 20 kg

DRUGS (6)
  1. GENOTROPIN [Suspect]
     Active Substance: SOMATROPIN
     Dosage: 1.3 MG, DAILY
     Route: 058
  2. ALBUTEROL. [Concomitant]
     Active Substance: ALBUTEROL
     Dosage: UNK
  3. GENOTROPIN [Suspect]
     Active Substance: SOMATROPIN
     Indication: BODY HEIGHT BELOW NORMAL
     Dosage: 1.3 MG, DAILY
     Route: 058
     Dates: start: 200910
  4. GENOTROPIN [Suspect]
     Active Substance: SOMATROPIN
     Dosage: 1.6 MG, DAILY
     Dates: start: 2009
  5. EPIPEN [Concomitant]
     Active Substance: EPINEPHRINE
     Dosage: UNK
  6. TRIAMCINOLONE [Concomitant]
     Active Substance: TRIAMCINOLONE
     Dosage: UNK

REACTIONS (7)
  - Product storage error [Unknown]
  - Headache [Unknown]
  - Bone density increased [Unknown]
  - Drug administration error [Unknown]
  - Blood chromogranin A increased [Unknown]
  - Intentional product use issue [Unknown]
  - Insulin-like growth factor increased [Unknown]

NARRATIVE: CASE EVENT DATE: 20150209
